FAERS Safety Report 9293778 (Version 9)
Quarter: 2014Q4

REPORT INFORMATION
  Report Type: Spontaneous
  Country: US (occurrence: US)
  Receive Date: 20130516
  Receipt Date: 20141218
  Transmission Date: 20150529
  Serious: Yes (Hospitalization, Disabling, Other)
  Sender: FDA-Public Use
  Company Number: US-009507513-1305USA006994

PATIENT
  Sex: Male
  Weight: 79.82 kg

DRUGS (3)
  1. PROSCAR [Suspect]
     Active Substance: FINASTERIDE
     Indication: ALOPECIA
     Dosage: 5 MG, UNK
     Route: 048
     Dates: start: 20060427, end: 200607
  2. PROPECIA [Suspect]
     Active Substance: FINASTERIDE
     Indication: ALOPECIA
     Dosage: 1 MG, QD
     Route: 048
     Dates: start: 19960909, end: 20060220
  3. FINASTERIDE. [Suspect]
     Active Substance: FINASTERIDE
     Indication: ALOPECIA
     Dosage: 5 MG, UNK
     Route: 048
     Dates: start: 20060707, end: 20080412

REACTIONS (64)
  - Organic erectile dysfunction [Unknown]
  - Laryngeal operation [Unknown]
  - Hyperlipidaemia [Unknown]
  - Chest pain [Unknown]
  - Haematospermia [Unknown]
  - Neuropathy peripheral [Unknown]
  - Laryngeal operation [Unknown]
  - Glucose tolerance impaired [Unknown]
  - Full blood count abnormal [Unknown]
  - Depression [Not Recovered/Not Resolved]
  - Depression [Unknown]
  - Vocal cord paralysis [Unknown]
  - Affect lability [Unknown]
  - Drug administration error [Unknown]
  - Polycythaemia [Unknown]
  - Fatigue [Unknown]
  - Rash [Unknown]
  - Erectile dysfunction [Not Recovered/Not Resolved]
  - Testicular atrophy [Unknown]
  - Blood testosterone decreased [Unknown]
  - Pain [Unknown]
  - Metabolic syndrome [Unknown]
  - Blood luteinising hormone decreased [Unknown]
  - Hypertension [Unknown]
  - Gastrooesophageal reflux disease [Unknown]
  - Hyperkalaemia [Unknown]
  - Blood testosterone increased [Unknown]
  - Sexual dysfunction [Not Recovered/Not Resolved]
  - Joint injury [Not Recovered/Not Resolved]
  - Sepsis [Recovering/Resolving]
  - Spinal laminectomy [Unknown]
  - Anxiety [Not Recovered/Not Resolved]
  - Groin pain [Unknown]
  - Calculus urinary [Unknown]
  - Renal cyst haemorrhage [Unknown]
  - Hernia repair [Unknown]
  - Constipation [Unknown]
  - Physical assault [Not Recovered/Not Resolved]
  - Hernia [Unknown]
  - Malaise [Unknown]
  - Tachycardia [Unknown]
  - Anxiety [Unknown]
  - Hernia hiatus repair [Unknown]
  - Intervertebral disc disorder [Unknown]
  - Night sweats [Unknown]
  - Nephrolithiasis [Unknown]
  - Penile size reduced [Unknown]
  - Blood triglycerides increased [Unknown]
  - Type 2 diabetes mellitus [Unknown]
  - Hypercholesterolaemia [Unknown]
  - Neoplasm prostate [Unknown]
  - Benign prostatic hyperplasia [Unknown]
  - Sleep disorder [Unknown]
  - Spinal column injury [Not Recovered/Not Resolved]
  - Acute kidney injury [Recovering/Resolving]
  - Memory impairment [Unknown]
  - Prostatitis [Unknown]
  - Testicular failure [Unknown]
  - Vocal cord injection [Unknown]
  - Hypogonadism male [Unknown]
  - Dysphonia [Unknown]
  - Pain [Unknown]
  - Oesophagogastric fundoplasty [Unknown]
  - Loss of libido [Unknown]

NARRATIVE: CASE EVENT DATE: 199611
